FAERS Safety Report 5334010-7 (Version None)
Quarter: 2007Q2

REPORT INFORMATION
  Report Type: 
  Country: None (occurrence: None)
  Receive Date: 20070524
  Receipt Date: 20070510
  Transmission Date: 20071010
  Serious: Yes (Other)
  Sender: FDA-Public Use
  Company Number: ES-ELI_LILLY_AND_COMPANY-ES200705004340

PATIENT
  Age: 66 Year
  Sex: Female

DRUGS (8)
  1. CYMBALTA [Suspect]
     Indication: DYSTHYMIC DISORDER
     Dosage: 60 MG, DAILY (1/D)
     Route: 048
     Dates: start: 20070201, end: 20070402
  2. PLENUR [Concomitant]
     Indication: DYSTHYMIC DISORDER
     Dosage: 600 MG, DAILY (1/D)
     Route: 048
     Dates: start: 20070201, end: 20070402
  3. OMEPRAZOLE [Concomitant]
     Indication: OESOPHAGEAL DISORDER
  4. CARDYL [Concomitant]
     Route: 048
  5. COAPROVEL [Concomitant]
     Indication: ESSENTIAL HYPERTENSION
     Route: 048
  6. TRILEPTAL [Concomitant]
     Dosage: 1800 MG, DAILY (1/D)
     Route: 048
  7. IDALPREM [Concomitant]
     Dosage: 5 MG, DAILY (1/D)
     Route: 048
  8. NOCTAMID [Concomitant]
     Dosage: 2.5 MG, DAILY (1/D)
     Route: 048

REACTIONS (5)
  - BLOOD ALKALINE PHOSPHATASE INCREASED [None]
  - DRUG INTERACTION [None]
  - DRUG LEVEL INCREASED [None]
  - THINKING ABNORMAL [None]
  - TREMOR [None]
